FAERS Safety Report 17152005 (Version 1)
Quarter: 2019Q4

REPORT INFORMATION
  Report Type: Spontaneous
  Country: US (occurrence: US)
  Receive Date: 20191213
  Receipt Date: 20191213
  Transmission Date: 20200122
  Serious: No
  Sender: FDA-Public Use
  Company Number: US-VERTEX PHARMACEUTICALS-2019-012264

PATIENT
  Sex: Female

DRUGS (23)
  1. HYDROMORPHONE [Concomitant]
     Active Substance: HYDROMORPHONE
  2. PANCREAZE [Concomitant]
     Active Substance: PANCRELIPASE AMYLASE\PANCRELIPASE LIPASE\PANCRELIPASE PROTEASE
  3. ALPRAZOLAM. [Concomitant]
     Active Substance: ALPRAZOLAM
  4. ONDANSETRON [Concomitant]
     Active Substance: ONDANSETRON
  5. ZINC. [Concomitant]
     Active Substance: ZINC
  6. VITAMIN E [Concomitant]
     Active Substance: .ALPHA.-TOCOPHEROL
  7. ALBUTEROL [SALBUTAMOL] [Concomitant]
     Active Substance: ALBUTEROL
  8. VITAMIN C [Concomitant]
     Active Substance: ASCORBIC ACID
  9. D3 VITAMINS 100 [Concomitant]
  10. ESTRADIOL. [Concomitant]
     Active Substance: ESTRADIOL
  11. TRAMADOL. [Concomitant]
     Active Substance: TRAMADOL
  12. URSODIOL. [Concomitant]
     Active Substance: URSODIOL
  13. VITAMIN A [RETINOL] [Concomitant]
     Active Substance: RETINOL
  14. CETIRIZINE [Concomitant]
     Active Substance: CETIRIZINE HYDROCHLORIDE
  15. CYCLOBENZAPRINE. [Concomitant]
     Active Substance: CYCLOBENZAPRINE
  16. DIPHENHYDRAMINE. [Concomitant]
     Active Substance: DIPHENHYDRAMINE
  17. COLISTIMETHATE [COLISTIMETHATE SODIUM] [Concomitant]
     Active Substance: COLISTIMETHATE SODIUM
  18. OMEPRAZOLE. [Concomitant]
     Active Substance: OMEPRAZOLE
  19. POLYETHYLENE GLYCOL [Concomitant]
     Active Substance: POLYETHYLENE GLYCOLS
  20. TRIKAFTA [Suspect]
     Active Substance: ELEXACAFTOR\IVACAFTOR\TEZACAFTOR
     Indication: CYSTIC FIBROSIS
     Dosage: 2 TABLETS AM AND 1 BLUE TABLET PM
     Route: 048
     Dates: start: 201911
  21. AZITHROMYCIN ANHYDROUS. [Concomitant]
     Active Substance: AZITHROMYCIN ANHYDROUS
  22. MEPHYTON [Concomitant]
     Active Substance: PHYTONADIONE
  23. CAYSTON [Concomitant]
     Active Substance: AZTREONAM

REACTIONS (2)
  - Headache [Not Recovered/Not Resolved]
  - Nausea [Not Recovered/Not Resolved]

NARRATIVE: CASE EVENT DATE: 2019
